FAERS Safety Report 17887961 (Version 1)
Quarter: 2020Q2

REPORT INFORMATION
  Report Type: Report from Study
  Country: SE (occurrence: SE)
  Receive Date: 20200612
  Receipt Date: 20200612
  Transmission Date: 20200714
  Serious: Yes (Other)
  Sender: FDA-Public Use
  Company Number: SE-AUROBINDO-AUR-APL-2020-027456

PATIENT
  Age: 47 Year
  Sex: Female

DRUGS (1)
  1. TRAMADOL. [Suspect]
     Active Substance: TRAMADOL
     Indication: PRODUCT USED FOR UNKNOWN INDICATION
     Dosage: UNK
     Route: 065

REACTIONS (7)
  - Tremor [Unknown]
  - Hyperacusis [Unknown]
  - Headache [Unknown]
  - Asthenia [Unknown]
  - Hyperhidrosis [Unknown]
  - Syncope [Unknown]
  - Feeling cold [Unknown]
